FAERS Safety Report 12320133 (Version 2)
Quarter: 2016Q2

REPORT INFORMATION
  Report Type: Spontaneous
  Country: KR (occurrence: KR)
  Receive Date: 20160430
  Receipt Date: 20160502
  Transmission Date: 20160815
  Serious: Yes (Other)
  Sender: FDA-Public Use
  Company Number: KR-ACCORD-040115

PATIENT
  Age: 51 Year
  Sex: Male

DRUGS (6)
  1. VINCRISTINE [Suspect]
     Active Substance: VINCRISTINE
     Indication: DIFFUSE LARGE B-CELL LYMPHOMA
     Dosage: RECEIVED 2 CYCLES AS R-CHOP REGIMEN
  2. METHOTREXATE [Suspect]
     Active Substance: METHOTREXATE
     Indication: DIFFUSE LARGE B-CELL LYMPHOMA
     Dosage: RECEIVED 1 CYCLE AT HIGH DOSE 3.5 G/M2, FOLLOWED BY R-CHOP REGIMEN.
  3. DOXORUBICIN [Suspect]
     Active Substance: DOXORUBICIN
     Indication: DIFFUSE LARGE B-CELL LYMPHOMA
     Dosage: RECEIVED 2 CYCLES AS R-CHOP REGIMEN
  4. RITUXIMAB [Suspect]
     Active Substance: RITUXIMAB
     Indication: DIFFUSE LARGE B-CELL LYMPHOMA
     Dosage: RECEIVED 2 CYCLES AS R-CHOP REGIMEN
  5. CYCLOPHOSPHAMIDE/CYCLOPHOSPHAMIDE MONOHYDRATE [Suspect]
     Active Substance: CYCLOPHOSPHAMIDE
     Indication: DIFFUSE LARGE B-CELL LYMPHOMA
     Dosage: RECEIVED 2 CYCLES AS R-CHOP REGIMEN
  6. PREDNISOLONE. [Suspect]
     Active Substance: PREDNISOLONE
     Indication: DIFFUSE LARGE B-CELL LYMPHOMA
     Dosage: RECEIVED 2 CYCLES AS R-CHOP REGIMEN

REACTIONS (6)
  - Malignant neoplasm progression [None]
  - Neutropenia [Unknown]
  - Asthenia [Unknown]
  - Mechanical ileus [None]
  - Pneumonia aspiration [None]
  - Diffuse large B-cell lymphoma [None]
